FAERS Safety Report 8209134-7 (Version None)
Quarter: 2012Q1

REPORT INFORMATION
  Report Type: 
  Country: None (occurrence: None)
  Receive Date: 20120314
  Receipt Date: 20120306
  Transmission Date: 20120608
  Serious: Yes (Hospitalization)
  Sender: FDA-Public Use
  Company Number: DK-BAYER-2012-021573

PATIENT
  Age: 31 Year
  Sex: Female

DRUGS (2)
  1. ULTRAVIST 150 [Suspect]
     Indication: SCAN WITH CONTRAST
     Route: 042
     Dates: start: 20120209, end: 20120209
  2. ULTRAVIST 150 [Suspect]
     Indication: UROGRAM

REACTIONS (6)
  - NAUSEA [None]
  - PRURITUS [None]
  - DIZZINESS [None]
  - ABDOMINAL PAIN [None]
  - PALLOR [None]
  - FATIGUE [None]
